FAERS Safety Report 21370628 (Version 2)
Quarter: 2022Q4

REPORT INFORMATION
  Report Type: Spontaneous
  Country: US (occurrence: US)
  Receive Date: 20220923
  Receipt Date: 20221019
  Transmission Date: 20230113
  Serious: No
  Sender: FDA-Public Use
  Company Number: US-ORGANON-O2209USA001484

PATIENT
  Sex: Female
  Weight: 68.027 kg

DRUGS (2)
  1. NEXPLANON [Suspect]
     Active Substance: ETONOGESTREL
     Dosage: 1 IMPLANT IN HER RIGHT ARM
     Route: 059
     Dates: start: 2019, end: 20220914
  2. NEXPLANON [Suspect]
     Active Substance: ETONOGESTREL
     Dosage: 1 IMPLANT OF 68 MG IN RIGHT UPPER ARM
     Dates: start: 20220914, end: 20220914

REACTIONS (4)
  - Menstruation irregular [Unknown]
  - Heavy menstrual bleeding [Unknown]
  - Complication of device insertion [Recovered/Resolved]
  - Product quality issue [Unknown]

NARRATIVE: CASE EVENT DATE: 20190101
